FAERS Safety Report 5894036-1 (Version None)
Quarter: 2008Q3

REPORT INFORMATION
  Report Type: 
  Country: None (occurrence: None)
  Receive Date: 20080923
  Receipt Date: 20080915
  Transmission Date: 20090109
  Serious: Yes (Hospitalization)
  Sender: FDA-Public Use
  Company Number: US-ELI_LILLY_AND_COMPANY-US200809003232

PATIENT
  Sex: Female

DRUGS (1)
  1. HUMALOG [Suspect]

REACTIONS (3)
  - DRUG DOSE OMISSION [None]
  - GAIT DISTURBANCE [None]
  - SURGERY [None]
